FAERS Safety Report 4586316-7 (Version None)
Quarter: 2005Q1

REPORT INFORMATION
  Report Type: 
  Country: None (occurrence: None)
  Receive Date: 20050217
  Receipt Date: 20050210
  Transmission Date: 20050727
  Serious: Yes (Death, Hospitalization)
  Sender: FDA-Public Use
  Company Number: SE-MERCK-0502SWE00017

PATIENT
  Age: 74 Year
  Sex: Female

DRUGS (13)
  1. VIOXX [Suspect]
     Indication: BACK PAIN
     Route: 048
     Dates: start: 20030401
  2. ESCITALOPRAM OXALATE [Concomitant]
     Route: 065
  3. BUCLIZINE HYDROCHLORIDE [Concomitant]
     Route: 065
  4. ACETAMINOPHEN [Concomitant]
     Route: 065
  5. MEPREDNISONE [Concomitant]
     Route: 065
  6. METOCLOPRAMIDE HYDROCHLORIDE [Concomitant]
     Route: 065
  7. ESTRADIOL [Concomitant]
     Route: 065
  8. METOCLOPRAMIDE HYDROCHLORIDE [Concomitant]
     Route: 065
  9. LACTULOSE [Concomitant]
     Route: 065
  10. LANSOPRAZOLE [Concomitant]
     Route: 065
  11. DIMETHICONE [Concomitant]
     Route: 065
  12. ZOLPIDEM TARTRATE [Concomitant]
     Route: 065
  13. SODIUM PICOSULFATE [Concomitant]
     Route: 065

REACTIONS (1)
  - CEREBROVASCULAR DISORDER [None]
